FAERS Safety Report 8830276 (Version 1)
Quarter: 2012Q4

REPORT INFORMATION
  Report Type: 
  Country: ES (occurrence: ES)
  Receive Date: 20121009
  Receipt Date: 20121009
  Transmission Date: 20130627
  Serious: Yes (Other)
  Sender: FDA-Public Use
  Company Number: ES-JNJFOC-20121002973

PATIENT
  Age: 67 Year
  Sex: Female

DRUGS (2)
  1. CETIRIZINE HCL AND PSEUDOEPHEDRINE HCL ER [Suspect]
     Route: 048
  2. CETIRIZINE HCL AND PSEUDOEPHEDRINE HCL ER [Suspect]
     Indication: RESPIRATORY TRACT INFECTION
     Route: 048
     Dates: start: 20120504

REACTIONS (5)
  - Arthralgia [Recovered/Resolved]
  - Rash pruritic [Recovered/Resolved]
  - Urinary retention [Recovered/Resolved]
  - Off label use [Unknown]
  - Drug administered to patient of inappropriate age [Unknown]
